FAERS Safety Report 13592914 (Version 4)
Quarter: 2019Q4

REPORT INFORMATION
  Report Type: Report from Study
  Country: CN (occurrence: CN)
  Receive Date: 20170530
  Receipt Date: 20191220
  Transmission Date: 20200122
  Serious: Yes (Other)
  Sender: FDA-Public Use
  Company Number: PHHY2017CN078432

PATIENT
  Age: 44 Year
  Sex: Female

DRUGS (148)
  1. MYFORTIC [Suspect]
     Active Substance: MYCOPHENOLATE SODIUM
     Dosage: 1080 MG, QD
     Route: 065
     Dates: start: 20161202, end: 20161203
  2. TACROLIMUS. [Suspect]
     Active Substance: TACROLIMUS
     Dosage: 3.5 MG, QD
     Route: 065
     Dates: start: 20161213, end: 20161214
  3. TACROLIMUS. [Suspect]
     Active Substance: TACROLIMUS
     Dosage: 5.5 MG, QD
     Route: 065
     Dates: start: 20170105, end: 20170112
  4. SODIUM PHOSPHATE [Concomitant]
     Active Substance: SODIUM PHOSPHATE
     Dosage: 130 ML, QD
     Route: 065
     Dates: start: 20161209, end: 20161209
  5. SODIUM BICARBONATE. [Concomitant]
     Active Substance: SODIUM BICARBONATE
     Dosage: 2000 ML, BID
     Route: 042
     Dates: start: 20161213, end: 20161213
  6. ALANYL GLUTAMINE [Concomitant]
     Active Substance: ALANYL GLUTAMINE
     Dosage: 20000 MG, QD
     Route: 042
     Dates: start: 20161130, end: 20161213
  7. ALLOPURINOL. [Concomitant]
     Active Substance: ALLOPURINOL
     Indication: BLOOD URIC ACID INCREASED
     Dosage: 1 DF, QD
     Route: 048
     Dates: start: 20170223
  8. AMINOMETHYLBENZOIC ACID [Concomitant]
     Active Substance: AMINOMETHYLBENZOIC ACID
     Indication: HAEMOSTASIS
     Dosage: 600 MG, QD
     Route: 042
     Dates: start: 20161125, end: 20161126
  9. COBAMAMIDE [Concomitant]
     Active Substance: COBAMAMIDE
     Indication: ANAEMIA
     Dosage: 0.75 MG, TID
     Route: 048
     Dates: start: 20161206, end: 20161226
  10. DEZOCINE [Concomitant]
     Active Substance: DEZOCINE
     Indication: PAIN
     Dosage: 20 MG, QD
     Route: 042
     Dates: start: 20161126, end: 20161128
  11. DOPAMINE [Concomitant]
     Active Substance: DOPAMINE HYDROCHLORIDE
     Indication: CARDIAC DISORDER
     Dosage: 5 MG, QD
     Route: 042
     Dates: start: 20161125, end: 20161126
  12. ERYTHROCYTES [Concomitant]
     Active Substance: HUMAN RED BLOOD CELL
     Indication: PRODUCT USED FOR UNKNOWN INDICATION
     Dosage: 4 IU, QD
     Route: 042
     Dates: start: 20161214, end: 20161214
  13. FUROSEMIDE. [Concomitant]
     Active Substance: FUROSEMIDE
     Dosage: 60 MG, TID
     Route: 042
     Dates: start: 20161203, end: 20161203
  14. INDAPAMIDE. [Concomitant]
     Active Substance: INDAPAMIDE
     Indication: BLOOD PRESSURE INCREASED
     Dosage: 1.5 MG, QD
     Route: 048
     Dates: start: 20161130
  15. LIDOCAINE HYDROCHLORIDE. [Concomitant]
     Active Substance: LIDOCAINE HYDROCHLORIDE
     Indication: POLYURIA
     Dosage: 10 ML, QD
     Route: 042
     Dates: start: 20161129, end: 20161129
  16. METOCLOPRAMIDE. [Concomitant]
     Active Substance: METOCLOPRAMIDE
     Dosage: 10 MG, QD
     Route: 042
     Dates: start: 20161212, end: 20161212
  17. SCOPOLAMINE [Concomitant]
     Active Substance: SCOPOLAMINE
     Indication: PRODUCT USED FOR UNKNOWN INDICATION
     Dosage: 0.3 MG, QD
     Route: 030
     Dates: start: 20161125, end: 20161125
  18. TORASEMIDE [Concomitant]
     Active Substance: TORSEMIDE
     Dosage: 60 MG, TID
     Route: 042
     Dates: start: 20161128, end: 20161129
  19. TORASEMIDE [Concomitant]
     Active Substance: TORSEMIDE
     Dosage: 60 MG, QD
     Route: 042
     Dates: start: 20161130, end: 20161130
  20. VITAMIN K1 [Concomitant]
     Active Substance: PHYTONADIONE
     Indication: HAEMOSTASIS
     Dosage: 20 MG, QD
     Route: 042
     Dates: start: 20161125, end: 20161126
  21. CEFOTAXIME;SULBACTAM [Concomitant]
     Indication: ANTIBIOTIC PROPHYLAXIS
     Dosage: 750 MG, QD
     Route: 058
     Dates: start: 20161125, end: 20161125
  22. NACL [Concomitant]
     Active Substance: SODIUM CHLORIDE
     Indication: INTRAOPERATIVE CARE
     Dosage: 300 ML, QD
     Route: 042
     Dates: start: 20161125, end: 20161125
  23. TORSEMIDE. [Concomitant]
     Active Substance: TORSEMIDE
     Indication: DIURETIC THERAPY
     Dosage: 60 MG, QD
     Route: 042
     Dates: start: 20161125, end: 20161126
  24. BASILIXIMAB [Suspect]
     Active Substance: BASILIXIMAB
     Dosage: 20 MG, QD
     Route: 065
     Dates: start: 20161128, end: 20161128
  25. PREDNISONE. [Suspect]
     Active Substance: PREDNISONE
     Dosage: 20 MG, QD
     Route: 065
     Dates: start: 20161201, end: 20161201
  26. PREDNISONE. [Suspect]
     Active Substance: PREDNISONE
     Dosage: 10 MG, QD
     Route: 065
     Dates: start: 20161202, end: 20161202
  27. TACROLIMUS. [Suspect]
     Active Substance: TACROLIMUS
     Dosage: 4 MG, QD
     Route: 065
     Dates: start: 20170119, end: 20170126
  28. SODIUM BICARBONATE. [Concomitant]
     Active Substance: SODIUM BICARBONATE
     Indication: PRODUCT USED FOR UNKNOWN INDICATION
     Dosage: 250 ML, QD
     Route: 042
     Dates: start: 20161126, end: 20161126
  29. SODIUM BICARBONATE. [Concomitant]
     Active Substance: SODIUM BICARBONATE
     Dosage: 125 ML, QD
     Route: 042
     Dates: start: 20161214, end: 20161214
  30. ALANYL GLUTAMINE [Concomitant]
     Active Substance: ALANYL GLUTAMINE
     Indication: PRODUCT USED FOR UNKNOWN INDICATION
     Dosage: 20000 MG, QD
     Route: 042
     Dates: start: 20161126, end: 20161127
  31. ARGATROBAN. [Concomitant]
     Active Substance: ARGATROBAN
     Indication: PRODUCT USED FOR UNKNOWN INDICATION
     Dosage: 20 MG, QD
     Route: 042
     Dates: start: 20161213, end: 20161213
  32. DEZOCINE [Concomitant]
     Active Substance: DEZOCINE
     Dosage: 30 MG, BID
     Route: 042
     Dates: start: 20161130, end: 20161130
  33. DOPAMINE [Concomitant]
     Active Substance: DOPAMINE HYDROCHLORIDE
     Dosage: 200 MG, QD
     Route: 042
     Dates: start: 20161130, end: 20161130
  34. FOLIC ACID. [Concomitant]
     Active Substance: FOLIC ACID
     Indication: ANAEMIA
     Dosage: 10 MG, TID
     Route: 048
     Dates: start: 20161205, end: 20161226
  35. LANSOPRAZOLE. [Concomitant]
     Active Substance: LANSOPRAZOLE
     Indication: GASTRITIS PROPHYLAXIS
     Dosage: 60 MG, QD
     Route: 042
     Dates: start: 20161125, end: 20161125
  36. MICAFUNGIN. [Concomitant]
     Active Substance: MICAFUNGIN SODIUM
     Indication: INFECTION PROPHYLAXIS
     Dosage: 100 MG, QD
     Route: 042
     Dates: start: 20161126, end: 20161127
  37. PHENTOLAMINE MESYLATE. [Concomitant]
     Active Substance: PHENTOLAMINE MESYLATE
     Dosage: 5 MG, QD
     Route: 042
     Dates: start: 20161129, end: 20161129
  38. RECOMBINANT HUMAN ERYTHROPOIETIN [Concomitant]
     Active Substance: ERYTHROPOIETIN
     Indication: RED BLOOD CELL COUNT DECREASED
     Dosage: 1 OT (WD), QD
     Route: 058
     Dates: start: 20161126, end: 20161128
  39. RECOMBINANT HUMAN ERYTHROPOIETIN [Concomitant]
     Active Substance: ERYTHROPOIETIN
     Dosage: 1 OT (WD), QD
     Route: 042
     Dates: start: 20161217, end: 20161218
  40. TACROLIMUS. [Suspect]
     Active Substance: TACROLIMUS
     Dosage: 3 MG, QD
     Route: 065
     Dates: start: 20161206, end: 20161207
  41. TACROLIMUS. [Suspect]
     Active Substance: TACROLIMUS
     Dosage: 3 MG, QD
     Route: 065
     Dates: start: 20170126, end: 20170216
  42. ALPROSTADIL. [Concomitant]
     Active Substance: ALPROSTADIL
     Dosage: 20 U, QD
     Route: 042
     Dates: start: 20161128, end: 20161223
  43. DEZOCINE [Concomitant]
     Active Substance: DEZOCINE
     Dosage: 10 MG, QD
     Route: 030
     Dates: start: 20161129, end: 20161130
  44. DOPAMINE [Concomitant]
     Active Substance: DOPAMINE HYDROCHLORIDE
     Indication: POLYURIA
     Dosage: 200 MG, TID
     Route: 042
     Dates: start: 20161126, end: 20161126
  45. DOPAMINE [Concomitant]
     Active Substance: DOPAMINE HYDROCHLORIDE
     Dosage: 100 MG, BID
     Route: 042
     Dates: start: 20161127, end: 20161127
  46. FUROSEMIDE. [Concomitant]
     Active Substance: FUROSEMIDE
     Dosage: 80 MG, QD
     Route: 042
     Dates: start: 20161211, end: 20161213
  47. RECOMBINANT HUMAN ERYTHROPOIETIN [Concomitant]
     Active Substance: ERYTHROPOIETIN
     Dosage: 1 OT (WD), QD
     Route: 042
     Dates: start: 20161204, end: 20161205
  48. SODIUM CHLORIDE. [Concomitant]
     Active Substance: SODIUM CHLORIDE
     Indication: PRODUCT USED FOR UNKNOWN INDICATION
     Dosage: 300 ML, QD
     Route: 042
     Dates: start: 20161125, end: 20161125
  49. TIGECYCLINE. [Concomitant]
     Active Substance: TIGECYCLINE
     Dosage: 50 MG, QD
     Route: 042
     Dates: start: 20161211, end: 20161212
  50. VITAMIN C [Concomitant]
     Active Substance: ASCORBIC ACID
     Indication: PRODUCT USED FOR UNKNOWN INDICATION
     Dosage: 3000 MG, QD
     Route: 042
     Dates: start: 20161214, end: 20161219
  51. MYFORTIC [Suspect]
     Active Substance: MYCOPHENOLATE SODIUM
     Indication: RENAL TRANSPLANT
     Dosage: 1440 MG, QD
     Route: 065
     Dates: start: 20161126, end: 20161201
  52. BASILIXIMAB [Suspect]
     Active Substance: BASILIXIMAB
     Indication: RENAL TRANSPLANT
     Dosage: 20 MG, QD
     Route: 065
     Dates: start: 20161125, end: 20161125
  53. TACROLIMUS. [Suspect]
     Active Substance: TACROLIMUS
     Indication: PRODUCT USED FOR UNKNOWN INDICATION
     Dosage: 4 MG, QD
     Route: 065
     Dates: start: 20161201, end: 20161202
  54. TACROLIMUS. [Suspect]
     Active Substance: TACROLIMUS
     Dosage: 4 MG, QD
     Route: 065
     Dates: start: 20161208, end: 20161212
  55. TACROLIMUS. [Suspect]
     Active Substance: TACROLIMUS
     Dosage: 2 MG, QD
     Route: 065
     Dates: start: 20161215, end: 20161216
  56. TACROLIMUS. [Suspect]
     Active Substance: TACROLIMUS
     Dosage: 2.5 MG, QD
     Route: 065
     Dates: end: 20161219
  57. SODIUM PHOSPHATE [Concomitant]
     Active Substance: SODIUM PHOSPHATE
     Dosage: 130 ML, QD
     Route: 065
     Dates: start: 20161201, end: 20161201
  58. PROTAMINE SULFATE. [Concomitant]
     Active Substance: PROTAMINE SULFATE
     Indication: PRODUCT USED FOR UNKNOWN INDICATION
     Dosage: 5 ML, QD
     Route: 042
     Dates: start: 20161125, end: 20161125
  59. ALBUMIN (HUMAN) [Concomitant]
     Active Substance: ALBUMIN HUMAN
     Dosage: 50 ML, QD
     Route: 042
     Dates: start: 20161211, end: 20161212
  60. SODIUM BICARBONATE. [Concomitant]
     Active Substance: SODIUM BICARBONATE
     Dosage: 2250 ML, QD
     Route: 042
     Dates: start: 20161130, end: 20161130
  61. ALPROSTADIL. [Concomitant]
     Active Substance: ALPROSTADIL
     Indication: CARDIOVASCULAR INSUFFICIENCY
     Dosage: 20 U, QD
     Route: 042
     Dates: start: 20161126, end: 20161127
  62. DEZOCINE [Concomitant]
     Active Substance: DEZOCINE
     Indication: INCISION SITE PAIN
     Dosage: 20 MG, QD
     Route: 042
     Dates: start: 20161125, end: 20161125
  63. DOPAMINE [Concomitant]
     Active Substance: DOPAMINE HYDROCHLORIDE
     Indication: BLOOD PRESSURE ABNORMAL
     Dosage: 100 MG, 7 TIMES /DAY
     Route: 042
     Dates: start: 20161126, end: 20161126
  64. FUROSEMIDE. [Concomitant]
     Active Substance: FUROSEMIDE
     Dosage: 80 MG, QD
     Route: 042
     Dates: start: 20161213, end: 20161213
  65. LANSOPRAZOLE. [Concomitant]
     Active Substance: LANSOPRAZOLE
     Dosage: 60 MG, QD
     Route: 042
     Dates: start: 20161128, end: 20161209
  66. LIDOCAINE HYDROCHLORIDE. [Concomitant]
     Active Substance: LIDOCAINE HYDROCHLORIDE
     Indication: VASOSPASM
     Dosage: 10 ML, QD
     Route: 042
     Dates: start: 20161125, end: 20161126
  67. MICAFUNGIN. [Concomitant]
     Active Substance: MICAFUNGIN SODIUM
     Dosage: 100 MG, QD
     Route: 042
     Dates: start: 20161128, end: 20161210
  68. OCTREOTIDE ACETATE. [Concomitant]
     Active Substance: OCTREOTIDE ACETATE
     Indication: HAEMOSTASIS
     Dosage: 0.1 MG, TID
     Route: 058
     Dates: start: 20161209, end: 20161213
  69. PAPAVERINE [Concomitant]
     Active Substance: PAPAVERINE
     Indication: VASOSPASM
     Dosage: 90 MG, QD
     Route: 042
     Dates: start: 20161126, end: 20161126
  70. PHENTOLAMINE MESYLATE. [Concomitant]
     Active Substance: PHENTOLAMINE MESYLATE
     Indication: POLYURIA
     Dosage: 5 MG, QD
     Route: 042
     Dates: start: 20161125, end: 20161126
  71. POTASSIUM CHLORIDE. [Concomitant]
     Active Substance: POTASSIUM CHLORIDE
     Indication: PRODUCT USED FOR UNKNOWN INDICATION
     Dosage: 90 ML, QD
     Route: 042
     Dates: start: 20161130, end: 20161130
  72. POTASSIUM CHLORIDE. [Concomitant]
     Active Substance: POTASSIUM CHLORIDE
     Dosage: 10 ML, QD
     Route: 042
     Dates: start: 20161214, end: 20161219
  73. RECOMBINANT HUMAN ERYTHROPOIETIN [Concomitant]
     Active Substance: ERYTHROPOIETIN
     Dosage: 1 OT (WD), QD
     Route: 058
     Dates: start: 20161201, end: 20161201
  74. RECOMBINANT HUMAN ERYTHROPOIETIN [Concomitant]
     Active Substance: ERYTHROPOIETIN
     Dosage: 1 OT (WD), QD
     Route: 042
     Dates: start: 20161222, end: 20161223
  75. SODIUM LACTATE. [Concomitant]
     Active Substance: SODIUM LACTATE
     Dosage: 500 ML, QD
     Route: 042
     Dates: start: 20161129, end: 20161129
  76. MYFORTIC [Suspect]
     Active Substance: MYCOPHENOLATE SODIUM
     Dosage: 720 MG, QD
     Route: 065
     Dates: start: 20161204, end: 20161207
  77. PREDNISONE. [Suspect]
     Active Substance: PREDNISONE
     Dosage: 30 MG, QD
     Route: 065
     Dates: start: 20161130, end: 20161130
  78. PREDNISONE. [Suspect]
     Active Substance: PREDNISONE
     Dosage: 5 MG, QD
     Route: 065
     Dates: start: 20161226
  79. TACROLIMUS. [Suspect]
     Active Substance: TACROLIMUS
     Dosage: 2 MG, QD
     Route: 065
     Dates: start: 20161202, end: 20161205
  80. TACROLIMUS. [Suspect]
     Active Substance: TACROLIMUS
     Dosage: 6 MG, QD
     Route: 065
     Dates: start: 20161220, end: 20161222
  81. TACROLIMUS. [Suspect]
     Active Substance: TACROLIMUS
     Dosage: 6.5 MG, QD
     Route: 065
     Dates: start: 20161223, end: 20161226
  82. SODIUM PHOSPHATE [Concomitant]
     Active Substance: SODIUM PHOSPHATE
     Indication: PRODUCT USED FOR UNKNOWN INDICATION
     Dosage: 130 ML, QD
     Route: 065
     Dates: start: 20161127, end: 20161127
  83. GLUCOSE [Concomitant]
     Active Substance: DEXTROSE
     Indication: PRODUCT USED FOR UNKNOWN INDICATION
     Dosage: 500 ML, QD (10 %)
     Route: 042
     Dates: start: 20161126, end: 20161126
  84. GLUCOSE [Concomitant]
     Active Substance: DEXTROSE
     Indication: PRODUCT USED FOR UNKNOWN INDICATION
     Dosage: 60 ML, QD (50%)
     Route: 042
     Dates: start: 20161214, end: 20161219
  85. ETAMSYLATE [Concomitant]
     Active Substance: ETHAMSYLATE
     Indication: HAEMOSTASIS
     Dosage: 2000 MG, QD
     Route: 042
     Dates: start: 20161125, end: 20161126
  86. FUROSEMIDE. [Concomitant]
     Active Substance: FUROSEMIDE
     Dosage: 100 MG, QD
     Route: 042
     Dates: start: 20161129, end: 20161129
  87. FUROSEMIDE. [Concomitant]
     Active Substance: FUROSEMIDE
     Dosage: 60 MG, BID
     Route: 042
     Dates: start: 20161201, end: 20161201
  88. HEPARIN SODIUM. [Concomitant]
     Active Substance: HEPARIN SODIUM
     Indication: PRODUCT USED FOR UNKNOWN INDICATION
     Dosage: 1.25 OT (WU), QD
     Route: 042
     Dates: start: 20161125, end: 20161125
  89. HEPARIN SODIUM. [Concomitant]
     Active Substance: HEPARIN SODIUM
     Dosage: 1.25 OT (WU), QD
     Route: 042
     Dates: start: 20161130, end: 20161130
  90. INSULIN [Concomitant]
     Active Substance: INSULIN NOS
     Indication: HYPERGLYCAEMIA
     Dosage: 16 IU, QD
     Route: 042
     Dates: start: 20161214, end: 20161219
  91. LACTULOSE. [Concomitant]
     Active Substance: LACTULOSE
     Indication: DIARRHOEA
     Dosage: 15 ML, QD
     Route: 048
     Dates: start: 20161127, end: 20161127
  92. LANSOPRAZOLE. [Concomitant]
     Active Substance: LANSOPRAZOLE
     Dosage: 60 MG, BID
     Route: 042
     Dates: start: 20161125, end: 20161127
  93. LANSOPRAZOLE. [Concomitant]
     Active Substance: LANSOPRAZOLE
     Dosage: 60 MG, QD
     Route: 042
     Dates: start: 20161210, end: 20161213
  94. METOCLOPRAMIDE. [Concomitant]
     Active Substance: METOCLOPRAMIDE
     Dosage: 10 MG, BID
     Route: 030
     Dates: start: 20161201, end: 20161201
  95. MICAFUNGIN. [Concomitant]
     Active Substance: MICAFUNGIN SODIUM
     Dosage: 50 MG, QD
     Route: 042
     Dates: start: 20161211, end: 20161212
  96. POTASSIUM CHLORIDE. [Concomitant]
     Active Substance: POTASSIUM CHLORIDE
     Dosage: 80 ML, QD
     Route: 042
     Dates: start: 20161213, end: 20161213
  97. POTASSIUM CHLORIDE. [Concomitant]
     Active Substance: POTASSIUM CHLORIDE
     Dosage: 2000 MG, BID
     Route: 048
     Dates: start: 20161219, end: 20161219
  98. SODIUM CHLORIDE. [Concomitant]
     Active Substance: SODIUM CHLORIDE
     Dosage: 1500 ML, QD
     Route: 042
     Dates: start: 20161127, end: 20161127
  99. TORASEMIDE [Concomitant]
     Active Substance: TORSEMIDE
     Dosage: 60 MG, QD
     Route: 042
     Dates: start: 20161205, end: 20161205
  100. PREDNISONE. [Suspect]
     Active Substance: PREDNISONE
     Indication: PRODUCT USED FOR UNKNOWN INDICATION
     Dosage: 50 MG, QD
     Route: 065
     Dates: start: 20161128, end: 20161128
  101. PREDNISONE. [Suspect]
     Active Substance: PREDNISONE
     Dosage: 5 MG, QD
     Route: 065
     Dates: start: 20161203, end: 20161226
  102. TACROLIMUS. [Suspect]
     Active Substance: TACROLIMUS
     Dosage: 6 MG, QD
     Route: 065
     Dates: start: 20161226, end: 20161229
  103. TACROLIMUS. [Suspect]
     Active Substance: TACROLIMUS
     Dosage: 4.5 MG, QD
     Route: 065
     Dates: start: 20170112, end: 20170119
  104. ALBUMIN (HUMAN) [Concomitant]
     Active Substance: ALBUMIN HUMAN
     Dosage: 100 ML, BID
     Route: 042
     Dates: start: 20161125, end: 20161210
  105. SODIUM BICARBONATE. [Concomitant]
     Active Substance: SODIUM BICARBONATE
     Dosage: 1500 ML, QD
     Route: 042
     Dates: start: 20161127, end: 20161127
  106. AMINO ACIDS NOS [Concomitant]
     Active Substance: AMINO ACIDS, SOURCE UNSPECIFIED
     Indication: PRODUCT USED FOR UNKNOWN INDICATION
     Dosage: 250 ML, QD
     Route: 042
     Dates: start: 20161214, end: 20161219
  107. DEZOCINE [Concomitant]
     Active Substance: DEZOCINE
     Dosage: 30 MG, QD
     Route: 042
     Dates: start: 20161201, end: 20161207
  108. FUROSEMIDE. [Concomitant]
     Active Substance: FUROSEMIDE
     Indication: POLYURIA
     Dosage: 100 MG, QD
     Route: 042
     Dates: start: 20161125, end: 20161125
  109. POTASSIUM CHLORIDE. [Concomitant]
     Active Substance: POTASSIUM CHLORIDE
     Indication: PRODUCT USED FOR UNKNOWN INDICATION
     Dosage: 30 ML, QD
     Route: 042
     Dates: start: 20161206, end: 20161207
  110. RECOMBINANT HUMAN INTERLEUKIN-11 [Concomitant]
     Active Substance: OPRELVEKIN
     Indication: PLATELET COUNT DECREASED
     Dosage: 4 MG, QD
     Route: 058
     Dates: start: 20161217, end: 20161217
  111. RIBOFLAVIN SODIUM PHOSPHATE [Concomitant]
     Active Substance: RIBOFLAVIN 5^-PHOSPHATE SODIUM
     Indication: PRODUCT USED FOR UNKNOWN INDICATION
     Dosage: 40 MG, QD
     Route: 042
     Dates: start: 20161126, end: 20161127
  112. SODIUM CHLORIDE. [Concomitant]
     Active Substance: SODIUM CHLORIDE
     Dosage: 2000 ML, QD
     Route: 042
     Dates: start: 20161113, end: 20161113
  113. TIGECYCLINE. [Concomitant]
     Active Substance: TIGECYCLINE
     Dosage: 50 MG, BID
     Route: 042
     Dates: start: 20161128, end: 20161210
  114. TORASEMIDE [Concomitant]
     Active Substance: TORSEMIDE
     Dosage: 60 MG, BID
     Route: 042
     Dates: start: 20161206, end: 20161207
  115. TORASEMIDE [Concomitant]
     Active Substance: TORSEMIDE
     Dosage: 60 MG, QD
     Route: 042
     Dates: start: 20161212, end: 20161213
  116. TRAMADOL. [Concomitant]
     Active Substance: TRAMADOL
     Indication: PAIN
     Dosage: 0.1 MG, QD
     Route: 048
     Dates: start: 20161209, end: 20161215
  117. PREDNISONE. [Suspect]
     Active Substance: PREDNISONE
     Dosage: 40 MG, QD
     Route: 065
     Dates: start: 20161129, end: 20161129
  118. ALBUMIN (HUMAN) [Concomitant]
     Active Substance: ALBUMIN HUMAN
     Dosage: 100 ML, QD
     Route: 042
     Dates: start: 20161202, end: 20161202
  119. ALBUMIN (HUMAN) [Concomitant]
     Active Substance: ALBUMIN HUMAN
     Dosage: 100 ML, QD
     Route: 042
     Dates: start: 20161203, end: 20161203
  120. SODIUM BICARBONATE. [Concomitant]
     Active Substance: SODIUM BICARBONATE
     Dosage: 250 ML, BID
     Route: 042
     Dates: start: 20161204, end: 20161204
  121. COENZYME A [Concomitant]
     Active Substance: COENZYME A
     Indication: PROPHYLAXIS
     Dosage: 15 MG, QD
     Route: 042
     Dates: start: 20161126, end: 20161127
  122. DEZOCINE [Concomitant]
     Active Substance: DEZOCINE
     Dosage: 10 MG, BID
     Route: 030
     Dates: start: 20161201, end: 20161201
  123. DOPAMINE [Concomitant]
     Active Substance: DOPAMINE HYDROCHLORIDE
     Dosage: 5 MG, QD
     Route: 042
     Dates: start: 20161129, end: 20161129
  124. DOPAMINE [Concomitant]
     Active Substance: DOPAMINE HYDROCHLORIDE
     Dosage: 200 MG, BID
     Route: 042
     Dates: start: 20161201, end: 20161201
  125. FUROSEMIDE. [Concomitant]
     Active Substance: FUROSEMIDE
     Dosage: 100 MG, QD
     Route: 042
     Dates: start: 20161125, end: 20161127
  126. FUROSEMIDE. [Concomitant]
     Active Substance: FUROSEMIDE
     Dosage: 20 MG, QD
     Route: 042
     Dates: start: 20161203, end: 20161203
  127. LEVAMLODIPINE BESILATE [Concomitant]
     Active Substance: LEVAMLODIPINE BESYLATE
     Indication: BLOOD PRESSURE INCREASED
     Dosage: 2.5 MG, BID
     Route: 048
     Dates: start: 20161130
  128. MAGNESIUM ISOGLYCYRRHIZINATE [Concomitant]
     Active Substance: MAGNESIUM ISOGLYCYRRHIZINATE
     Indication: PROPHYLAXIS
     Dosage: 150 MG, QD
     Route: 042
     Dates: start: 20161126, end: 20161127
  129. PHENOBARBITAL. [Concomitant]
     Active Substance: PHENOBARBITAL
     Indication: PRODUCT USED FOR UNKNOWN INDICATION
     Dosage: 100 MG, QD
     Route: 030
     Dates: start: 20161125, end: 20161125
  130. SODIUM BICARBONATE. [Concomitant]
     Active Substance: SODIUM BICARBONATE
     Indication: ACIDOSIS
     Dosage: 1500 MG, TID
     Route: 048
     Dates: start: 20161205, end: 20161226
  131. SODIUM BICARBONATE. [Concomitant]
     Active Substance: SODIUM BICARBONATE
     Dosage: 1500 MG, TID
     Route: 048
     Dates: start: 20161226
  132. SODIUM LACTATE. [Concomitant]
     Active Substance: SODIUM LACTATE
     Indication: PRODUCT USED FOR UNKNOWN INDICATION
     Dosage: 1000 ML, QD
     Route: 042
     Dates: start: 20161126, end: 20161126
  133. TIGECYCLINE. [Concomitant]
     Active Substance: TIGECYCLINE
     Indication: INFECTION PROPHYLAXIS
     Dosage: 50 MG, BID
     Route: 042
     Dates: start: 20161126, end: 20161127
  134. TORASEMIDE [Concomitant]
     Active Substance: TORSEMIDE
     Indication: POLYURIA
     Dosage: 60 MG, QD
     Route: 042
     Dates: start: 20161125, end: 20161126
  135. CEFOTAXIME;SULBACTAM [Concomitant]
     Dosage: 3000 MG, BID
     Route: 042
     Dates: start: 20161125, end: 20161127
  136. METHYLPREDNISOLONE. [Suspect]
     Active Substance: METHYLPREDNISOLONE
     Indication: PRODUCT USED FOR UNKNOWN INDICATION
     Dosage: 500 MG, QD
     Route: 065
     Dates: start: 20161125, end: 20161126
  137. TACROLIMUS. [Suspect]
     Active Substance: TACROLIMUS
     Dosage: 5 MG, QD
     Route: 065
     Dates: start: 20161229, end: 20170105
  138. TACROLIMUS. [Suspect]
     Active Substance: TACROLIMUS
     Dosage: 2.5 MG, QD
     Route: 065
     Dates: start: 20170216
  139. CALCIUM GLUCONATE. [Concomitant]
     Active Substance: CALCIUM GLUCONATE
     Indication: PRODUCT USED FOR UNKNOWN INDICATION
     Dosage: 20 ML, QD
     Route: 042
     Dates: start: 20161126, end: 20161126
  140. ALBUMIN (HUMAN) [Concomitant]
     Active Substance: ALBUMIN HUMAN
     Indication: PRODUCT USED FOR UNKNOWN INDICATION
     Dosage: 100 ML, QD
     Route: 042
     Dates: start: 20161125, end: 20161125
  141. SODIUM BICARBONATE. [Concomitant]
     Active Substance: SODIUM BICARBONATE
     Dosage: 250 ML, BID
     Route: 042
     Dates: start: 20161213, end: 20161213
  142. FUROSEMIDE. [Concomitant]
     Active Substance: FUROSEMIDE
     Dosage: 80 MG, QD
     Route: 042
     Dates: start: 20161126, end: 20161127
  143. FUROSEMIDE. [Concomitant]
     Active Substance: FUROSEMIDE
     Dosage: 60 MG, BID
     Route: 042
     Dates: start: 20161204, end: 20161204
  144. FUROSEMIDE. [Concomitant]
     Active Substance: FUROSEMIDE
     Dosage: 60 MG, QD
     Route: 042
     Dates: start: 20161216, end: 20161216
  145. METOCLOPRAMIDE. [Concomitant]
     Active Substance: METOCLOPRAMIDE
     Indication: VOMITING
     Dosage: 10 MG, BID
     Route: 030
     Dates: start: 20161126, end: 20161126
  146. POTASSIUM CHLORIDE. [Concomitant]
     Active Substance: POTASSIUM CHLORIDE
     Indication: PRODUCT USED FOR UNKNOWN INDICATION
     Dosage: 2000 MG, BID
     Route: 048
     Dates: start: 20161218, end: 20161218
  147. RECOMBINANT HUMAN ERYTHROPOIETIN [Concomitant]
     Active Substance: ERYTHROPOIETIN
     Dosage: 1 OT (WD), QD
     Route: 042
     Dates: start: 20161213, end: 20161213
  148. SODIUM CHLORIDE. [Concomitant]
     Active Substance: SODIUM CHLORIDE
     Dosage: 2000 ML, QD
     Route: 042
     Dates: start: 20161130, end: 20161130

REACTIONS (12)
  - Pancreatitis [Recovering/Resolving]
  - Blood glucose increased [Unknown]
  - Lymphocyte count decreased [Unknown]
  - Anaemia [Recovered/Resolved]
  - Neutrophil count increased [Unknown]
  - Platelet count decreased [Unknown]
  - White blood cell count increased [Unknown]
  - Blood urea increased [Unknown]
  - Haemoglobin decreased [Unknown]
  - Delayed graft function [Recovered/Resolved]
  - Abdominal distension [Recovering/Resolving]
  - Bilirubin conjugated increased [Unknown]

NARRATIVE: CASE EVENT DATE: 20161125
